FAERS Safety Report 7481061-2 (Version None)
Quarter: 2011Q2

REPORT INFORMATION
  Report Type: 
  Country: None (occurrence: None)
  Receive Date: 20110516
  Receipt Date: 20110428
  Transmission Date: 20111010
  Serious: Yes (Other)
  Sender: FDA-Public Use
  Company Number: US-BAYER-200931534NA

PATIENT
  Sex: Male
  Weight: 97 kg

DRUGS (20)
  1. CLONIDINE [Concomitant]
  2. LOPRESSOR [Concomitant]
     Dosage: 50 MG, UNK
  3. PLAVIX [Concomitant]
     Dosage: 75 MG, QD
  4. ALLOPURINOL [Concomitant]
     Dosage: 300 MG, QD
  5. ACETYLSALICYLIC ACID SRT [Concomitant]
     Dosage: 325 MG, QD
  6. LIPITOR [Concomitant]
     Dosage: 10 MG, QD
  7. DOPAMINE HCL [Concomitant]
     Dosage: UNK
     Dates: start: 20021209
  8. DOBUTAMINE HYDROCHLORIDE [Concomitant]
     Dosage: UNK
     Dates: start: 20021209
  9. TRASYLOL [Suspect]
     Indication: PRODUCT USED FOR UNKNOWN INDICATION
     Route: 042
  10. NITROGLYCERIN [Concomitant]
     Dosage: 0.4 MG, UNK
  11. IMDUR [Concomitant]
     Dosage: 60 MG, UNK
  12. PROPOFOL [Concomitant]
     Dosage: UNK
     Dates: start: 20021209
  13. VERSED [Concomitant]
     Dosage: UNK
     Dates: start: 20021209
  14. COLACE [Concomitant]
  15. PRINIVIL [Concomitant]
     Dosage: 10 MG, QD
  16. NITROGLYCERIN [Concomitant]
     Dosage: UNK
  17. HEPARIN [Concomitant]
     Dosage: UNK
     Dates: start: 20021209
  18. FENTANYL [Concomitant]
     Dosage: UNK
  19. COLCHICINE [Concomitant]
     Dosage: 0.4 MG, QD
  20. NIASPAN [Concomitant]
     Dosage: 500 MG, BID

REACTIONS (12)
  - EMOTIONAL DISTRESS [None]
  - INJURY [None]
  - NERVOUSNESS [None]
  - RENAL FAILURE [None]
  - ANXIETY [None]
  - MULTI-ORGAN FAILURE [None]
  - FEAR [None]
  - ANHEDONIA [None]
  - UNEVALUABLE EVENT [None]
  - PAIN [None]
  - DEPRESSION [None]
  - RENAL INJURY [None]
